FAERS Safety Report 4935844-0 (Version None)
Quarter: 2006Q1

REPORT INFORMATION
  Report Type: 
  Country: None (occurrence: None)
  Receive Date: 20060307
  Receipt Date: 20060123
  Transmission Date: 20060701
  Serious: Yes (Other)
  Sender: FDA-Public Use
  Company Number: US-AVENTIS-200610802US

PATIENT
  Sex: Female
  Weight: 84.08 kg

DRUGS (11)
  1. LANTUS [Suspect]
     Indication: DIABETES MELLITUS
     Dates: start: 20030101
  2. ZOCOR [Concomitant]
     Indication: HYPERCHOLESTEROLAEMIA
  3. NOVOLOG [Concomitant]
  4. ASPIRIN [Concomitant]
  5. COREG [Concomitant]
  6. LEVOTHYROXINE SODIUM [Concomitant]
  7. ENALAPRIL MALEATE [Concomitant]
  8. FUROSEMIDE [Concomitant]
  9. HYDROCODONE [Concomitant]
     Indication: PAIN
  10. PROPOXYPHENE NAPSYLATE W/ ACETAMINOPHEN [Concomitant]
     Indication: PAIN
  11. CALCIUM GLUCONATE [Concomitant]

REACTIONS (6)
  - BLOOD GLUCOSE INCREASED [None]
  - DEPRESSION [None]
  - HEART VALVE REPLACEMENT [None]
  - QUADRUPLE VESSEL BYPASS GRAFT [None]
  - UPPER LIMB FRACTURE [None]
  - WEIGHT INCREASED [None]
